FAERS Safety Report 7650548-1 (Version None)
Quarter: 2011Q3

REPORT INFORMATION
  Report Type: 
  Country: None (occurrence: None)
  Receive Date: 20110727
  Receipt Date: 20110712
  Transmission Date: 20111222
  Serious: Yes (Life-Threatening, Hospitalization, Disabling)
  Sender: FDA-Public Use
  Company Number: TPG2011A01544

PATIENT
  Age: 60 Year
  Sex: Male

DRUGS (6)
  1. IRBESARTAN [Concomitant]
  2. ATORVASTATIN [Concomitant]
  3. METO SUCCINAT (METOPROLOL SUCCINATE) [Concomitant]
  4. ALLOPURINOL [Concomitant]
  5. ACTOS [Suspect]
     Indication: TYPE 2 DIABETES MELLITUS
     Dosage: 30 MG (30 MG, 1 IN 1 D)
     Route: 048
     Dates: start: 20070813, end: 20090926
  6. TORSEMIDE [Concomitant]

REACTIONS (2)
  - BLADDER CANCER [None]
  - PROSTATE CANCER [None]
